FAERS Safety Report 8607394-1 (Version None)
Quarter: 2012Q3

REPORT INFORMATION
  Report Type: 
  Country: None (occurrence: None)
  Receive Date: 20120803
  Receipt Date: 20120723
  Transmission Date: 20120928
  Serious: Yes (Other)
  Sender: FDA-Public Use
  Company Number: DSA_58727_2012

PATIENT
  Age: 69 Year
  Sex: Female

DRUGS (1)
  1. FLAGYL [Suspect]
     Indication: PRODUCT USED FOR UNKNOWN INDICATION
     Dosage: 500 MG ONCE, NOT AS PRESCRIBED INTRATHECAL
     Route: 037
     Dates: start: 20120723, end: 20120723

REACTIONS (1)
  - INCORRECT ROUTE OF DRUG ADMINISTRATION [None]
